FAERS Safety Report 4999387-0 (Version None)
Quarter: 2006Q2

REPORT INFORMATION
  Report Type: 
  Country: None (occurrence: None)
  Receive Date: 20060511
  Receipt Date: 20060428
  Transmission Date: 20061013
  Serious: Yes (Other)
  Sender: FDA-Public Use
  Company Number: PHBS2006ES06746

PATIENT
  Age: 30 Year
  Sex: Female

DRUGS (4)
  1. METYRAPONE [Suspect]
     Indication: HYPERCORTICOIDISM
     Dosage: 750 G/D
     Route: 065
  2. METYRAPONE [Suspect]
     Dosage: 2 G/D
     Route: 065
  3. METYRAPONE [Suspect]
     Dosage: 1.5 G/D
     Route: 065
  4. HYDROCORTISONE [Concomitant]

REACTIONS (4)
  - ADRENALECTOMY [None]
  - DRUG EXPOSURE DURING PREGNANCY [None]
  - PREMATURE LABOUR [None]
  - PREMATURE RUPTURE OF MEMBRANES [None]
